FAERS Safety Report 19900223 (Version 1)
Quarter: 2021Q3

REPORT INFORMATION
  Report Type: Spontaneous
  Country: US (occurrence: US)
  Receive Date: 20210929
  Receipt Date: 20210929
  Transmission Date: 20211014
  Serious: Yes (Hospitalization)
  Sender: FDA-Public Use
  Company Number: US-TEVA-2021-US-1958865

PATIENT
  Sex: Female

DRUGS (2)
  1. AJOVY [Suspect]
     Active Substance: FREMANEZUMAB-VFRM
     Indication: MIGRAINE
     Dosage: 225MCG (BLUE CAP)
     Route: 065
     Dates: start: 20210821
  2. AJOVY [Suspect]
     Active Substance: FREMANEZUMAB-VFRM

REACTIONS (5)
  - Peripheral coldness [Recovering/Resolving]
  - Incorrect dose administered [Unknown]
  - Fatigue [Unknown]
  - Somnolence [Unknown]
  - Hypoaesthesia [Not Recovered/Not Resolved]
